FAERS Safety Report 7505060-7 (Version None)
Quarter: 2011Q2

REPORT INFORMATION
  Report Type: 
  Country: None (occurrence: None)
  Receive Date: 20110526
  Receipt Date: 20110518
  Transmission Date: 20111010
  Serious: No
  Sender: FDA-Public Use
  Company Number: US-BIOGENIDEC-2011BI018810

PATIENT
  Age: 20 Year
  Sex: Female

DRUGS (1)
  1. TYSABRI [Suspect]
     Indication: MULTIPLE SCLEROSIS
     Route: 042
     Dates: start: 20110425

REACTIONS (8)
  - GAIT DISTURBANCE [None]
  - PERONEAL NERVE PALSY [None]
  - NECK PAIN [None]
  - MIGRAINE [None]
  - PYREXIA [None]
  - FEELING HOT [None]
  - BALANCE DISORDER [None]
  - MUSCULAR WEAKNESS [None]
